FAERS Safety Report 4487384-3 (Version None)
Quarter: 2004Q3

REPORT INFORMATION
  Report Type: 
  Country: None (occurrence: None)
  Receive Date: 20040921
  Receipt Date: 20040501
  Transmission Date: 20050211
  Serious: Yes (Hospitalization)
  Sender: FDA-Public Use
  Company Number: 163-20785-04050016

PATIENT
  Age: 62 Year
  Sex: Male
  Weight: 160 kg

DRUGS (4)
  1. THALOMID [Suspect]
     Indication: MALIGNANT MELANOMA
     Dosage: 200 MG, DAILY, ORAL; 100 MG, DAIILY, ORAL
     Route: 048
     Dates: start: 20040101, end: 20040318
  2. THALOMID [Suspect]
     Indication: MALIGNANT MELANOMA
     Dosage: 200 MG, DAILY, ORAL; 100 MG, DAIILY, ORAL
     Route: 048
     Dates: start: 20040421, end: 20040501
  3. THALOMID [Suspect]
     Indication: MALIGNANT MELANOMA
     Dosage: 200 MG, DAILY, ORAL; 100 MG, DAIILY, ORAL
     Route: 048
     Dates: start: 20040510
  4. TEMODAR [Concomitant]

REACTIONS (5)
  - ATAXIA [None]
  - DIZZINESS [None]
  - ESSENTIAL HYPERTENSION [None]
  - NERVOUSNESS [None]
  - PARAESTHESIA [None]
